FAERS Safety Report 4551825-3 (Version None)
Quarter: 2005Q1

REPORT INFORMATION
  Report Type: 
  Country: None (occurrence: None)
  Receive Date: 20050110
  Receipt Date: 20041231
  Transmission Date: 20050727
  Serious: Yes (Hospitalization)
  Sender: FDA-Public Use
  Company Number: 2005-01-0001

PATIENT
  Age: 56 Year
  Sex: Female

DRUGS (2)
  1. TEMODAL [Suspect]
     Indication: METASTASES TO CENTRAL NERVOUS SYSTEM
     Dosage: 400 MG ORAL
     Route: 048
     Dates: start: 20040308, end: 20040311
  2. CISPLATYL INJECTABLE [Suspect]
     Indication: METASTASES TO CENTRAL NERVOUS SYSTEM
     Dosage: 150 MG INTRAVENOUS
     Route: 042
     Dates: start: 20040308, end: 20040311

REACTIONS (1)
  - INTRACRANIAL PRESSURE INCREASED [None]
